FAERS Safety Report 16014520 (Version 1)
Quarter: 2019Q1

REPORT INFORMATION
  Report Type: Spontaneous
  Country: ZA (occurrence: ZA)
  Receive Date: 20190227
  Receipt Date: 20190227
  Transmission Date: 20190418
  Serious: Yes (Hospitalization)
  Sender: FDA-Public Use
  Company Number: ZA-NOVOPROD-648384

PATIENT
  Age: 71 Year
  Sex: Female

DRUGS (7)
  1. ESTROFEM (ESTRADIOL HEMIHYDRATE) [Suspect]
     Active Substance: ESTRADIOL HEMIHYDRATE
     Indication: HORMONE REPLACEMENT THERAPY
     Dosage: 1.00 MG
     Route: 048
  2. CITRAZ [Concomitant]
     Active Substance: ESCITALOPRAM OXALATE
     Route: 065
  3. NEXIAM                             /01479302/ [Concomitant]
     Active Substance: ESOMEPRAZOLE MAGNESIUM
     Route: 065
  4. OMNAIR [Concomitant]
     Active Substance: CICLESONIDE
     Route: 065
  5. SYMBICORD [Concomitant]
     Active Substance: BUDESONIDE\FORMOTEROL
     Route: 065
  6. VENLOR [Concomitant]
     Active Substance: VENLAFAXINE HYDROCHLORIDE
     Route: 065
  7. MONTE AIR [Concomitant]
     Active Substance: MONTELUKAST SODIUM
     Route: 065

REACTIONS (1)
  - Neoplasm malignant [Unknown]
